FAERS Safety Report 10094365 (Version 1)
Quarter: 2014Q2

REPORT INFORMATION
  Report Type: Spontaneous
  Country: FR (occurrence: FR)
  Receive Date: 20140422
  Receipt Date: 20140422
  Transmission Date: 20141212
  Serious: Yes (Hospitalization)
  Sender: FDA-Public Use
  Company Number: FR-JNJFOC-20140412354

PATIENT
  Age: 60 Year
  Sex: Female

DRUGS (7)
  1. XARELTO [Suspect]
     Indication: CEREBROVASCULAR ACCIDENT PROPHYLAXIS
     Route: 048
     Dates: start: 20131222, end: 20140207
  2. XARELTO [Suspect]
     Indication: ATRIAL FIBRILLATION
     Route: 048
     Dates: start: 20131222, end: 20140207
  3. COTAREG [Concomitant]
     Route: 065
  4. DIGOXINE [Concomitant]
     Route: 065
     Dates: start: 20131222
  5. ATENOLOL [Concomitant]
     Route: 065
     Dates: start: 20131222
  6. LEVOTHYROX [Concomitant]
     Route: 065
  7. FLECAINE [Concomitant]
     Route: 065
     Dates: start: 20131222

REACTIONS (1)
  - Hepatocellular injury [Recovered/Resolved]
